FAERS Safety Report 16425210 (Version 1)
Quarter: 2019Q2

REPORT INFORMATION
  Report Type: Spontaneous
  Country: US (occurrence: US)
  Receive Date: 20190613
  Receipt Date: 20190613
  Transmission Date: 20190711
  Serious: Yes (Other)
  Sender: FDA-Public Use
  Company Number: US-APOTEX-2019AP011180

PATIENT
  Sex: Female

DRUGS (24)
  1. MYCOPHENOLATE [Suspect]
     Active Substance: MYCOPHENOLIC ACID
     Indication: PULMONARY FUNCTION TEST DECREASED
  2. MYCOPHENOLATE [Suspect]
     Active Substance: MYCOPHENOLIC ACID
     Indication: PULMONARY SARCOIDOSIS
  3. METHOTREXATE. [Suspect]
     Active Substance: METHOTREXATE
     Indication: RESPIRATORY SYMPTOM
     Dosage: UNK
     Route: 065
  4. MINOCYCLINE [Suspect]
     Active Substance: MINOCYCLINE\MINOCYCLINE HYDROCHLORIDE
     Indication: RESPIRATORY SYMPTOM
     Dosage: UNK
     Route: 065
  5. AZATHIOPRINE. [Suspect]
     Active Substance: AZATHIOPRINE
     Indication: PULMONARY SARCOIDOSIS
  6. INFLIXIMAB [Suspect]
     Active Substance: INFLIXIMAB
     Indication: PULMONARY FUNCTION TEST DECREASED
  7. INFLIXIMAB [Suspect]
     Active Substance: INFLIXIMAB
     Indication: PULMONARY SARCOIDOSIS
  8. LEFLUNOMIDE. [Suspect]
     Active Substance: LEFLUNOMIDE
     Indication: RESPIRATORY SYMPTOM
     Dosage: UNK
     Route: 065
  9. HYDROXYCHLOROQUINE [Suspect]
     Active Substance: HYDROXYCHLOROQUINE
     Indication: PULMONARY FUNCTION TEST DECREASED
  10. METHOTREXATE. [Suspect]
     Active Substance: METHOTREXATE
     Indication: PULMONARY FUNCTION TEST DECREASED
  11. AZATHIOPRINE. [Suspect]
     Active Substance: AZATHIOPRINE
     Indication: PULMONARY FUNCTION TEST DECREASED
     Dosage: UNK
     Route: 065
  12. ADALIMUMAB [Suspect]
     Active Substance: ADALIMUMAB
     Indication: RESPIRATORY SYMPTOM
  13. INFLIXIMAB [Suspect]
     Active Substance: INFLIXIMAB
     Indication: RESPIRATORY SYMPTOM
     Dosage: UNK
     Route: 065
  14. METHOTREXATE. [Suspect]
     Active Substance: METHOTREXATE
     Indication: PULMONARY SARCOIDOSIS
  15. ADALIMUMAB [Suspect]
     Active Substance: ADALIMUMAB
     Indication: PULMONARY FUNCTION TEST DECREASED
     Dosage: UNK
     Route: 065
  16. ADALIMUMAB [Suspect]
     Active Substance: ADALIMUMAB
     Indication: PULMONARY SARCOIDOSIS
  17. MYCOPHENOLATE [Suspect]
     Active Substance: MYCOPHENOLIC ACID
     Indication: RESPIRATORY SYMPTOM
     Dosage: UNK
     Route: 065
  18. HYDROXYCHLOROQUINE [Suspect]
     Active Substance: HYDROXYCHLOROQUINE
     Indication: RESPIRATORY SYMPTOM
  19. HYDROXYCHLOROQUINE [Suspect]
     Active Substance: HYDROXYCHLOROQUINE
     Indication: PULMONARY SARCOIDOSIS
  20. LEFLUNOMIDE. [Suspect]
     Active Substance: LEFLUNOMIDE
     Indication: PULMONARY FUNCTION TEST DECREASED
  21. LEFLUNOMIDE. [Suspect]
     Active Substance: LEFLUNOMIDE
     Indication: PULMONARY SARCOIDOSIS
  22. AZATHIOPRINE. [Suspect]
     Active Substance: AZATHIOPRINE
     Indication: RESPIRATORY SYMPTOM
  23. MINOCYCLINE [Suspect]
     Active Substance: MINOCYCLINE\MINOCYCLINE HYDROCHLORIDE
     Indication: PULMONARY FUNCTION TEST DECREASED
  24. MINOCYCLINE [Suspect]
     Active Substance: MINOCYCLINE\MINOCYCLINE HYDROCHLORIDE
     Indication: PULMONARY SARCOIDOSIS

REACTIONS (2)
  - Drug ineffective [Unknown]
  - Leukopenia [Unknown]
